FAERS Safety Report 13895460 (Version 1)
Quarter: 2017Q3

REPORT INFORMATION
  Report Type: Spontaneous
  Country: US (occurrence: US)
  Receive Date: 20170818
  Receipt Date: 20170818
  Transmission Date: 20171127
  Serious: Yes (Disabling)
  Sender: FDA-Public Use
  Company Number: None

PATIENT
  Age: 39 Year
  Sex: Male
  Weight: 59.4 kg

DRUGS (2)
  1. BENADRYL [Concomitant]
     Active Substance: DIPHENHYDRAMINE HYDROCHLORIDE
  2. TRIAZOLAM. [Suspect]
     Active Substance: TRIAZOLAM
     Indication: INSOMNIA
     Dosage: ?          QUANTITY:90 TABLET(S);?AT BEDTIME ORAL
     Route: 048
     Dates: start: 20170501, end: 20170818

REACTIONS (5)
  - Dental caries [None]
  - Obesity [None]
  - Gingivitis [None]
  - Cardiac disorder [None]
  - Food craving [None]

NARRATIVE: CASE EVENT DATE: 20170818
